FAERS Safety Report 16376226 (Version 3)
Quarter: 2022Q1

REPORT INFORMATION
  Report Type: Spontaneous
  Country: NL (occurrence: NL)
  Receive Date: 20190531
  Receipt Date: 20220205
  Transmission Date: 20220423
  Serious: Yes (Other)
  Sender: FDA-Public Use
  Company Number: NL-AUROBINDO-AUR-APL-2019-004847

PATIENT
  Age: 41 Year
  Sex: Female

DRUGS (5)
  1. DESMOPRESSIN [Suspect]
     Active Substance: DESMOPRESSIN
     Indication: Diabetes insipidus
     Dosage: UNK
     Route: 045
  2. PREDNISONE [Suspect]
     Active Substance: PREDNISONE
     Indication: Secondary hypogonadism
     Dosage: UNK
     Route: 062
     Dates: start: 2014
  3. PREDNISONE [Suspect]
     Active Substance: PREDNISONE
     Indication: Langerhans^ cell histiocytosis
  4. VINBLASTINE [Suspect]
     Active Substance: VINBLASTINE
     Indication: Secondary hypogonadism
     Dosage: UNK
     Route: 062
     Dates: start: 2014
  5. VINBLASTINE [Suspect]
     Active Substance: VINBLASTINE
     Indication: Langerhans^ cell histiocytosis

REACTIONS (7)
  - Neurotoxicity [Unknown]
  - Langerhans^ cell histiocytosis [Unknown]
  - Toxicity to various agents [Unknown]
  - Bone lesion [Recovered/Resolved]
  - Secondary hypogonadism [Unknown]
  - Bone pain [Unknown]
  - Pyrexia [Unknown]

NARRATIVE: CASE EVENT DATE: 20140101
